FAERS Safety Report 5941631-7 (Version None)
Quarter: 2008Q4

REPORT INFORMATION
  Report Type: 
  Country: None (occurrence: None)
  Receive Date: 20081031
  Receipt Date: 20081017
  Transmission Date: 20090506
  Serious: Yes (Hospitalization)
  Sender: FDA-Public Use
  Company Number: 2008S1018985

PATIENT
  Age: 75 Year
  Sex: Female

DRUGS (1)
  1. BYSTOLIC [Suspect]
     Indication: HYPERTENSION
     Dosage: 5 MG;DAILY;ORAL
     Route: 048
     Dates: start: 20080101, end: 20080101

REACTIONS (2)
  - CARDIAC FAILURE [None]
  - HEART RATE DECREASED [None]
